FAERS Safety Report 7316801-6 (Version None)
Quarter: 2011Q1

REPORT INFORMATION
  Report Type: 
  Country: None (occurrence: None)
  Receive Date: 20110226
  Receipt Date: 20100817
  Transmission Date: 20110831
  Serious: No
  Sender: FDA-Public Use
  Company Number: US-ALLERGAN-1010648US

PATIENT
  Age: 47 Year
  Sex: Female

DRUGS (2)
  1. BOTOX COSMETIC [Suspect]
     Indication: SKIN WRINKLING
     Dosage: 20 UNITS, SINGLE
     Dates: start: 20100816, end: 20100816
  2. BOTOX COSMETIC [Suspect]
     Dosage: UNK UNITS, SINGLE
     Dates: start: 20070101, end: 20070101

REACTIONS (3)
  - ASTHENOPIA [None]
  - INFLUENZA [None]
  - GOITRE [None]
